FAERS Safety Report 16564338 (Version 1)
Quarter: 2019Q3

REPORT INFORMATION
  Report Type: Other
  Country: RO (occurrence: RO)
  Receive Date: 20190712
  Receipt Date: 20190712
  Transmission Date: 20191004
  Serious: Yes (Other)
  Sender: FDA-Public Use
  Company Number: RO-CELLTRION INC.-2019RO019164

PATIENT

DRUGS (1)
  1. TRASTUZUMAB (UNKNOWN) [Suspect]
     Active Substance: TRASTUZUMAB
     Indication: BREAST CANCER STAGE II
     Dosage: 600 MG, 3/WEEK
     Route: 058
     Dates: start: 201812

REACTIONS (12)
  - Tooth abscess [Recovered/Resolved]
  - Erythema [Unknown]
  - Malaise [Unknown]
  - Weight increased [Unknown]
  - Product use issue [Unknown]
  - Overdose [Unknown]
  - Injection site pain [Unknown]
  - Epistaxis [Unknown]
  - Asthenia [Recovered/Resolved]
  - Hot flush [Unknown]
  - Visual impairment [Not Recovered/Not Resolved]
  - Endocrine disorder [Unknown]

NARRATIVE: CASE EVENT DATE: 20190212
